FAERS Safety Report 14500141 (Version 1)
Quarter: 2018Q1

REPORT INFORMATION
  Report Type: Not Available
  Country: US (occurrence: US)
  Receive Date: 20180207
  Receipt Date: 20180207
  Transmission Date: 20180509
  Serious: No
  Sender: FDA-Public Use
  Company Number: US-FOUNDATIONCONSUMERHC-2017-US-014665

PATIENT
  Age: 30 Year
  Sex: Female
  Weight: 108.86 kg

DRUGS (2)
  1. METFORMIN [Concomitant]
     Active Substance: METFORMIN HYDROCHLORIDE
  2. PLAN B ONE-STEP [Suspect]
     Active Substance: LEVONORGESTREL
     Dosage: 1 TABLET X 1 DOSE
     Route: 048
     Dates: start: 20171023, end: 20171023

REACTIONS (5)
  - Abdominal distension [Unknown]
  - Vaginal haemorrhage [Recovered/Resolved]
  - Menstruation delayed [Unknown]
  - Breast tenderness [Unknown]
  - Abdominal pain upper [Recovered/Resolved]

NARRATIVE: CASE EVENT DATE: 20171126
